FAERS Safety Report 8625040 (Version 4)
Quarter: 2014Q4

REPORT INFORMATION
  Report Type: Spontaneous
  Country: US (occurrence: US)
  Receive Date: 20120620
  Receipt Date: 20141125
  Transmission Date: 20150529
  Serious: Yes (Hospitalization, Other)
  Sender: FDA-Public Use
  Company Number: US-ASTRAZENECA-2010SE25190

PATIENT
  Age: 49 Year
  Sex: Female
  Weight: 87.7 kg

DRUGS (23)
  1. AMATESIA [Concomitant]
     Indication: BOWEL MOVEMENT IRREGULARITY
  2. CHILDREN^S ASPIRIN [Concomitant]
     Active Substance: ASPIRIN
     Indication: ANGIOPATHY
     Route: 048
     Dates: start: 2010
  3. POTASSIUM CHLORIDE. [Concomitant]
     Active Substance: POTASSIUM CHLORIDE
     Indication: ELECTROLYTE IMBALANCE
     Route: 048
     Dates: start: 2010
  4. AMITIZA [Concomitant]
     Active Substance: LUBIPROSTONE
     Indication: GASTROINTESTINAL DISORDER
     Route: 048
     Dates: start: 2004
  5. CHILDREN^S ASPIRIN [Concomitant]
     Active Substance: ASPIRIN
     Indication: AORTIC CALCIFICATION
     Route: 048
     Dates: start: 2010
  6. CYCLOBENZAPRINE [Concomitant]
     Active Substance: CYCLOBENZAPRINE
     Indication: ARTHRITIS
     Route: 048
     Dates: start: 20140912
  7. XANAX [Concomitant]
     Active Substance: ALPRAZOLAM
     Indication: TREMOR
     Dosage: 1MG AS NEEDED TID
     Route: 048
     Dates: start: 2010
  8. FUROSEMIDE. [Concomitant]
     Active Substance: FUROSEMIDE
     Indication: FLUID RETENTION
     Route: 048
     Dates: start: 2010
  9. ADVIL [Concomitant]
     Active Substance: IBUPROFEN
     Indication: PAIN
     Route: 048
  10. NEXIUM [Suspect]
     Active Substance: ESOMEPRAZOLE MAGNESIUM
     Indication: GASTROOESOPHAGEAL REFLUX DISEASE
     Route: 048
     Dates: start: 2004, end: 20131101
  11. MAGNESIUM [Concomitant]
     Active Substance: MAGNESIUM
     Indication: ILL-DEFINED DISORDER
     Route: 048
     Dates: start: 2010
  12. MAGNESIUM [Concomitant]
     Active Substance: MAGNESIUM
     Indication: PROPHYLAXIS
     Route: 048
     Dates: start: 2010
  13. METOPROLOL SUCCINATE. [Suspect]
     Active Substance: METOPROLOL SUCCINATE
     Indication: HYPERTENSION
     Route: 048
     Dates: start: 2010
  14. AMITIZA [Concomitant]
     Active Substance: LUBIPROSTONE
     Indication: GASTROINTESTINAL DISORDER
     Route: 048
     Dates: start: 2004
  15. AMOXICILLIN. [Concomitant]
     Active Substance: AMOXICILLIN
     Indication: PROPHYLAXIS
     Route: 048
     Dates: start: 2010
  16. NEXIUM [Suspect]
     Active Substance: ESOMEPRAZOLE MAGNESIUM
     Indication: GASTROOESOPHAGEAL REFLUX DISEASE
     Route: 048
     Dates: start: 2004, end: 20131101
  17. NEXIUM [Suspect]
     Active Substance: ESOMEPRAZOLE MAGNESIUM
     Indication: GASTROOESOPHAGEAL REFLUX DISEASE
     Route: 048
     Dates: end: 201410
  18. IBUPROFEN. [Concomitant]
     Active Substance: IBUPROFEN
     Indication: PAIN
     Route: 048
     Dates: start: 20130415
  19. NEXIUM [Suspect]
     Active Substance: ESOMEPRAZOLE MAGNESIUM
     Indication: GASTROOESOPHAGEAL REFLUX DISEASE
     Route: 048
     Dates: end: 201410
  20. METOPROLOL SUCCINATE. [Suspect]
     Active Substance: METOPROLOL SUCCINATE
     Indication: HYPERTENSION
     Route: 048
     Dates: end: 2010
  21. VITAMIN D3 [Concomitant]
     Active Substance: CHOLECALCIFEROL
     Indication: VITAMIN D DECREASED
     Route: 048
     Dates: start: 2010
  22. CYCLOBENZAPRINE [Concomitant]
     Active Substance: CYCLOBENZAPRINE
     Indication: NERVE INJURY
     Route: 048
     Dates: start: 20140912
  23. PRAVASTATIN SODIUM. [Concomitant]
     Active Substance: PRAVASTATIN SODIUM
     Indication: BLOOD CHOLESTEROL ABNORMAL
     Route: 048
     Dates: start: 2005

REACTIONS (47)
  - Aortic valve calcification [Not Recovered/Not Resolved]
  - Clavicle fracture [Unknown]
  - Joint dislocation [Unknown]
  - Feeling abnormal [Unknown]
  - Gastrointestinal motility disorder [Unknown]
  - Poor peripheral circulation [Unknown]
  - Abnormal weight gain [Unknown]
  - Varicose vein [Unknown]
  - Peripheral vascular disorder [Unknown]
  - Frustration [Unknown]
  - Memory impairment [Unknown]
  - Drug withdrawal syndrome [Unknown]
  - Regurgitation [Unknown]
  - Transient ischaemic attack [Unknown]
  - Dysgraphia [Unknown]
  - Sensory loss [Unknown]
  - Throat irritation [Unknown]
  - Regurgitation [Unknown]
  - Fall [Unknown]
  - Dyspnoea [Unknown]
  - Tremor [Not Recovered/Not Resolved]
  - Extrasystoles [Unknown]
  - Aspiration [Unknown]
  - Heart valve incompetence [Unknown]
  - Drug dose omission [Not Recovered/Not Resolved]
  - Mobility decreased [Unknown]
  - Malnutrition [Unknown]
  - Gastrooesophageal reflux disease [Unknown]
  - Hypertension [Unknown]
  - Flatulence [Unknown]
  - Electrolyte imbalance [Unknown]
  - Adverse event [Unknown]
  - Drug withdrawal syndrome [Not Recovered/Not Resolved]
  - Hepatitis C [Not Recovered/Not Resolved]
  - Abnormal faeces [Unknown]
  - Grip strength decreased [Unknown]
  - Head injury [Unknown]
  - Feeding disorder [Not Recovered/Not Resolved]
  - Abnormal behaviour [Unknown]
  - Aggression [Unknown]
  - Syncope [Unknown]
  - Cardiac disorder [Unknown]
  - Pain [Unknown]
  - Colitis [Unknown]
  - Dyspepsia [Unknown]
  - Insomnia [Not Recovered/Not Resolved]
  - Eructation [Unknown]

NARRATIVE: CASE EVENT DATE: 2003
